FAERS Safety Report 9845484 (Version 1)
Quarter: 2014Q1

REPORT INFORMATION
  Report Type: Spontaneous
  Country: QA (occurrence: SA)
  Receive Date: 20140127
  Receipt Date: 20140127
  Transmission Date: 20141002
  Serious: Yes (Death)
  Sender: FDA-Public Use
  Company Number: SA-PFIZER INC-2014019996

PATIENT
  Age: 66 Year
  Sex: Female

DRUGS (2)
  1. VORICONAZOLE [Suspect]
     Indication: FUNGAL INFECTION
     Dosage: UNK
     Route: 042
  2. AMPHOTERICIN B LIPID COMPLEX [Suspect]
     Indication: FUNGAL INFECTION
     Dosage: 5 MG/KG, DAILY

REACTIONS (1)
  - Drug ineffective [Fatal]
